FAERS Safety Report 10013576 (Version 1)
Quarter: 2014Q1

REPORT INFORMATION
  Report Type: Spontaneous
  Country: US (occurrence: US)
  Receive Date: 20140315
  Receipt Date: 20140315
  Transmission Date: 20141002
  Serious: Yes (Other)
  Sender: FDA-Public Use
  Company Number: US-ROCHE-1361313

PATIENT
  Age: 65 Year
  Sex: Female

DRUGS (3)
  1. XELODA [Suspect]
     Indication: COLON CANCER
     Dosage: 7 DAYS ON AND 7 DAYS OFF
     Route: 048
     Dates: start: 20130215, end: 20140218
  2. XELODA [Suspect]
     Dosage: IN AM; LOT NO, EXPIRY DATE FROM 22-JAN-2014 BATCH
     Route: 048
  3. XELODA [Suspect]
     Dosage: IN PM; LOT NO, EXPIRY DATE FROM 22-JAN-2014 BATCH
     Route: 048

REACTIONS (2)
  - Neoplasm [Unknown]
  - Drug ineffective [Unknown]
